FAERS Safety Report 8575071-1 (Version None)
Quarter: 2012Q3

REPORT INFORMATION
  Report Type: 
  Country: None (occurrence: None)
  Receive Date: 20120807
  Receipt Date: 20120727
  Transmission Date: 20120928
  Serious: Yes (Hospitalization)
  Sender: FDA-Public Use
  Company Number: US-BAYER-2012-076845

PATIENT
  Age: 19 Year
  Sex: Female
  Weight: 70.295 kg

DRUGS (6)
  1. MOXIFLOXACIN [Concomitant]
  2. NORCO [Concomitant]
  3. SENOKOT [Concomitant]
  4. YAZ [Suspect]
     Indication: MENSTRUATION IRREGULAR
  5. MORPHINE SULFATE [Concomitant]
     Indication: PAIN
  6. DILAUDID [Concomitant]
     Indication: PAIN MANAGEMENT

REACTIONS (2)
  - PULMONARY INFARCTION [None]
  - PULMONARY EMBOLISM [None]
